FAERS Safety Report 10450917 (Version 3)
Quarter: 2014Q4

REPORT INFORMATION
  Report Type: Report from Study
  Country: US (occurrence: US)
  Receive Date: 20140912
  Receipt Date: 20141013
  Transmission Date: 20150528
  Serious: Yes (Other)
  Sender: FDA-Public Use
  Company Number: US-BAYER-2014-119128

PATIENT
  Age: 77 Year
  Sex: Male

DRUGS (8)
  1. UREA. [Concomitant]
     Active Substance: UREA
     Indication: DRY SKIN
  2. STIVARGA [Suspect]
     Active Substance: REGORAFENIB
     Indication: COLON CANCER
     Dosage: DAILY DOSE 160 MG
     Route: 048
     Dates: start: 20140801
  3. GABAPENTIN. [Concomitant]
     Active Substance: GABAPENTIN
     Indication: NEUROPATHY PERIPHERAL
  4. CASODEX [Suspect]
     Active Substance: BICALUTAMIDE
     Dosage: UNK
     Dates: start: 201306
  5. GABAPENTIN. [Concomitant]
     Active Substance: GABAPENTIN
     Indication: PERIPHERAL SWELLING
     Dosage: UNK
     Route: 048
     Dates: start: 201305
  6. STIVARGA [Suspect]
     Active Substance: REGORAFENIB
     Indication: COLON CANCER
     Dosage: DAILY DOSE 160 MG
     Route: 048
     Dates: start: 20140718
  7. GABAPENTIN. [Concomitant]
     Active Substance: GABAPENTIN
     Indication: HYPOAESTHESIA
  8. STIVARGA [Suspect]
     Active Substance: REGORAFENIB
     Indication: COLON CANCER
     Dosage: 80 MG, QD
     Route: 048
     Dates: start: 20140901, end: 20140908

REACTIONS (9)
  - Hypoaesthesia [None]
  - Pain in extremity [None]
  - Dry skin [None]
  - Cellulitis [Recovered/Resolved]
  - Gait disturbance [Recovered/Resolved]
  - Skin discolouration [None]
  - Peripheral swelling [Not Recovered/Not Resolved]
  - Skin bacterial infection [Recovered/Resolved]
  - Palmar-plantar erythrodysaesthesia syndrome [None]

NARRATIVE: CASE EVENT DATE: 20140817
